FAERS Safety Report 20513110 (Version 2)
Quarter: 2024Q1

REPORT INFORMATION
  Report Type: Spontaneous
  Country: US (occurrence: US)
  Receive Date: 20220224
  Receipt Date: 20240226
  Transmission Date: 20240410
  Serious: No
  Sender: FDA-Public Use
  Company Number: US-AMNEAL PHARMACEUTICALS-2021-AMRX-01239

PATIENT
  Age: 78 Year
  Sex: Female

DRUGS (13)
  1. RYTARY [Suspect]
     Active Substance: CARBIDOPA\LEVODOPA
     Indication: Product used for unknown indication
     Dosage: 48.75/195, 1 CAPSULES, 4 /DAY
     Route: 048
     Dates: start: 20201221
  2. RYTARY [Suspect]
     Active Substance: CARBIDOPA\LEVODOPA
     Dosage: 48.75/195MG, 1 CAPSULES, 3 /DAY
     Route: 048
     Dates: end: 20201221
  3. RYTARY [Suspect]
     Active Substance: CARBIDOPA\LEVODOPA
     Dosage: 48.75/195, 1 CAPSULES, 3X/DAY
     Route: 048
  4. RYTARY [Suspect]
     Active Substance: CARBIDOPA\LEVODOPA
     Dosage: 61.25-245MG, 1 CAPSULES, 1X/DAY, AT 10 PM
     Route: 048
  5. RYTARY [Suspect]
     Active Substance: CARBIDOPA\LEVODOPA
     Dosage: 48.75/195, 1 CAPSULE BY MOUTH EVERY NIGHT AT BEDTIME
     Route: 048
     Dates: start: 20220418
  6. RYTARY [Suspect]
     Active Substance: CARBIDOPA\LEVODOPA
     Dosage: 61.25-245 MG TAKE 1 CAPSULE BY MOUTH 03 TIMES A DAY DURING DAYTIME HOURS
     Route: 048
     Dates: start: 20220418
  7. RYTARY [Suspect]
     Active Substance: CARBIDOPA\LEVODOPA
     Dosage: 48.75/195, 1 CAPSULE BY MOUTH DAILY
     Route: 048
     Dates: start: 20230207
  8. RYTARY [Suspect]
     Active Substance: CARBIDOPA\LEVODOPA
     Dosage: 61.25-245 MG TAKE 1 CAPSULE BY MOUTH 04 TIMES A DAY
     Route: 048
     Dates: start: 20230207
  9. RYTARY [Suspect]
     Active Substance: CARBIDOPA\LEVODOPA
     Dosage: 61.25-245 MG TAKE 1 CAPSULE BY MOUTH 03 TIMES A DAY
     Route: 048
     Dates: start: 20230925
  10. RYTARY [Suspect]
     Active Substance: CARBIDOPA\LEVODOPA
     Dosage: 61.25-245 MG TAKE 1 CAPSULE BY MOUTH 03 TIMES A DAY
     Route: 048
     Dates: start: 20231002
  11. RYTARY [Suspect]
     Active Substance: CARBIDOPA\LEVODOPA
     Dosage: 48.75/195, 1 CAPSULE BY MOUTH EVERY NIGHT AT BEDTIME
     Route: 048
     Dates: start: 20231002
  12. RYTARY [Suspect]
     Active Substance: CARBIDOPA\LEVODOPA
     Dosage: 48.75/195, 1 CAPSULE BY MOUTH 03 TIMES A DAY
     Route: 048
     Dates: start: 202310
  13. RYTARY [Suspect]
     Active Substance: CARBIDOPA\LEVODOPA
     Dosage: 61.25-245 MG, 01 CAPSULE BY MOUTH EVERY NIGHT
     Route: 048
     Dates: start: 202310

REACTIONS (2)
  - Tremor [Unknown]
  - Hallucination [None]

NARRATIVE: CASE EVENT DATE: 20231016
